FAERS Safety Report 9237780 (Version 1)
Quarter: 2013Q2

REPORT INFORMATION
  Report Type: Report from Study
  Country: JP (occurrence: JP)
  Receive Date: 20130418
  Receipt Date: 20130418
  Transmission Date: 20140414
  Serious: Yes (Hospitalization)
  Sender: FDA-Public Use
  Company Number: JP-009507513-1304JPN007371

PATIENT
  Age: 34 Year
  Sex: Male
  Weight: 71 kg

DRUGS (7)
  1. PEGINTRON [Suspect]
     Indication: CHRONIC HEPATITIS C
     Dosage: 1.4 MICROGRAM PER KILOGRAM, QW
     Route: 058
     Dates: start: 20120925, end: 20130218
  2. PEGINTRON [Suspect]
     Dosage: 1.1 MICROGRAM PER KILOGRAM, QW
     Route: 058
     Dates: start: 20130313, end: 20130313
  3. PEGINTRON [Suspect]
     Dosage: 0.8 MICROGRAM PER KILOGRAM, QW
     Dates: start: 20130323, end: 20130323
  4. REBETOL [Suspect]
     Indication: CHRONIC HEPATITIS C
     Dosage: 800 MG, QD
     Route: 048
     Dates: start: 20120925, end: 20130305
  5. TELAVIC [Suspect]
     Indication: CHRONIC HEPATITIS C
     Dosage: 1500 MILLIGRAMS, QD
     Route: 048
     Dates: start: 20120925
  6. ACTOS [Concomitant]
     Indication: DIABETES MELLITUS
     Dosage: 15 MG, QD
     Route: 048
     Dates: end: 20130127
  7. ACTOS [Concomitant]
     Dosage: 7.5 MG, QD
     Route: 048
     Dates: start: 20130128

REACTIONS (1)
  - Mental status changes [Recovering/Resolving]
